FAERS Safety Report 4579188-8 (Version None)
Quarter: 2005Q1

REPORT INFORMATION
  Report Type: 
  Country: None (occurrence: None)
  Receive Date: 20050208
  Receipt Date: 20050208
  Transmission Date: 20050727
  Serious: Yes (Life-Threatening)
  Sender: FDA-Public Use
  Company Number: None

PATIENT
  Sex: Male

DRUGS (2)
  1. CLINDAMYCIN    150 MG [Suspect]
     Indication: SKIN INFECTION
     Dosage: 150 MG   3 TIMES DAILY   ORAL
     Route: 048
     Dates: start: 20040827, end: 20040828
  2. CLINDAMYCIN    150 MG [Suspect]
     Indication: STAPHYLOCOCCAL INFECTION
     Dosage: 150 MG   3 TIMES DAILY   ORAL
     Route: 048
     Dates: start: 20040827, end: 20040828

REACTIONS (1)
  - WHEEZING [None]
